FAERS Safety Report 10064094 (Version 1)
Quarter: 2014Q2

REPORT INFORMATION
  Report Type: Spontaneous
  Country: US (occurrence: None)
  Receive Date: 20140404
  Receipt Date: 20140404
  Transmission Date: 20141212
  Serious: Yes (Death, Life-Threatening, Hospitalization)
  Sender: FDA-Public Use
  Company Number: US-SEPTODONT-201401829

PATIENT
  Age: 3 Year
  Sex: Female

DRUGS (4)
  1. EPINEPHRINE BITARTRATE\LIDOCAINE HYDROCHLORIDE [Suspect]
     Indication: LOCAL ANAESTHESIA
     Route: 004
     Dates: start: 20131203
  2. DEMEROL [Suspect]
  3. HYDROXYZINE HYDROCHLORIDE [Concomitant]
  4. NITROUS OXIDE (NITROUS OXIDE) [Concomitant]

REACTIONS (8)
  - Myocardial infarction [None]
  - Coma [None]
  - Unresponsive to stimuli [None]
  - Respiratory arrest [None]
  - Cardio-respiratory arrest [None]
  - Brain injury [None]
  - Overdose [None]
  - Drug interaction [None]
